FAERS Safety Report 10163741 (Version 2)
Quarter: 2014Q2

REPORT INFORMATION
  Report Type: Spontaneous
  Country: US (occurrence: US)
  Receive Date: 20140509
  Receipt Date: 20140625
  Transmission Date: 20141212
  Serious: Yes (Death)
  Sender: FDA-Public Use
  Company Number: US-FRI-1000067194

PATIENT
  Age: 70 Year
  Sex: Female
  Weight: 58 kg

DRUGS (20)
  1. TUDORZA PRESSAIR [Suspect]
     Indication: CHRONIC OBSTRUCTIVE PULMONARY DISEASE
     Dosage: 800 MCG
     Route: 055
     Dates: start: 20140219, end: 20140507
  2. FLUTICASONE [Concomitant]
     Dosage: 50 MCG/ACT ONE SPRAY EACH NOSTRIL TWICE DAILY
  3. OXYGEN [Concomitant]
     Dosage: 2 LPM AT NIGHT AS NEEDED WITH EXERCISE
  4. CALCIUM [Concomitant]
     Dosage: 1200 MG
  5. PROLASTIN-C [Concomitant]
     Indication: ALPHA-1 ANTI-TRYPSIN DEFICIENCY
     Dosage: 1000 MG INFUSED WEEKLY
  6. VITAMIN D [Concomitant]
     Dosage: 5000 IU WEEKLY
  7. SPIRONOLACTONE [Concomitant]
     Indication: HYPOKALAEMIA
  8. TRAMADOL [Concomitant]
     Dosage: 50 MG THREE TIMES DAILY AS NEEDED
  9. VITAMIN E [Concomitant]
     Dosage: 400 IU DAILY
  10. VITAMIN B COMPLEX [Concomitant]
     Dosage: DAILY
  11. FISH OIL [Concomitant]
     Dosage: DAILY
  12. PREMPRO [Concomitant]
     Dosage: 0.3- 1.5 MG DAILY
  13. ASPIRIN [Concomitant]
     Dosage: 81 MG ONE OR TWO TIMES WEEKLY
  14. TUMS [Concomitant]
     Dosage: 500 MG AS NEEDED
  15. TYLENOL [Concomitant]
     Dosage: 150 MG DAILY AS NEEDED
  16. METOPROLOL SUCCINATE [Concomitant]
     Dosage: 25 MG
  17. MAGNESIUM GLUCONATE [Concomitant]
     Dosage: 1500 MG
  18. CLARITIN [Concomitant]
     Dosage: 10 MG
  19. CELEXA [Concomitant]
     Dosage: 10 MG
     Route: 048
  20. POTASSIUM [Concomitant]
     Indication: HYPOKALAEMIA
     Dosage: 60 MEQ

REACTIONS (1)
  - Death [Fatal]
